FAERS Safety Report 9720092 (Version 1)
Quarter: 2013Q4

REPORT INFORMATION
  Report Type: Spontaneous
  Country: US (occurrence: US)
  Receive Date: 20131128
  Receipt Date: 20131128
  Transmission Date: 20140711
  Serious: Yes (Other)
  Sender: FDA-Public Use
  Company Number: US-ELI_LILLY_AND_COMPANY-US201311006954

PATIENT
  Age: 52 Year
  Sex: Male

DRUGS (1)
  1. HUMALOG 25% LISPRO, 75% NPL [Suspect]
     Indication: TYPE 1 DIABETES MELLITUS
     Dosage: 16 U, UNK
     Route: 065

REACTIONS (5)
  - Blood glucose abnormal [Recovered/Resolved]
  - Dry mouth [Unknown]
  - Vision blurred [Unknown]
  - Vomiting [Unknown]
  - Blood glucose increased [Recovered/Resolved]
